FAERS Safety Report 23210446 (Version 1)
Quarter: 2023Q4

REPORT INFORMATION
  Report Type: Spontaneous
  Country: US (occurrence: None)
  Receive Date: 20231117
  Receipt Date: 20231117
  Transmission Date: 20240110
  Serious: Yes (Other)
  Sender: FDA-Public Use
  Company Number: None

PATIENT
  Sex: Male

DRUGS (9)
  1. PROLIA [Suspect]
     Active Substance: DENOSUMAB
     Indication: Senile osteoporosis
     Dosage: 60 MG/ML SUBCUTANEOUS?? INJECT 1 SYRINGE UNDER THE SKIN (SWUBCUTANEOUS INJECTION) EVERY 6 MONTHS?
     Route: 058
     Dates: start: 20210805
  2. PROLIA [Suspect]
     Active Substance: DENOSUMAB
     Dosage: OTHER QUANTITY : 1 SYRINGE;?OTHER FREQUENCY : EVERY 6 MONTHS;?
     Route: 058
  3. ANORO ELLIPT AER [Concomitant]
  4. ASPIRIN [Concomitant]
     Active Substance: ASPIRIN
  5. CALCIUM CHW [Concomitant]
  6. FIBER [Concomitant]
  7. FLONASE ALGY SPR [Concomitant]
  8. MULTIVITAMIN [Concomitant]
  9. TRAMADOL HCL [Concomitant]
     Active Substance: TRAMADOL HYDROCHLORIDE

REACTIONS (1)
  - Neoplasm malignant [None]
